FAERS Safety Report 8889061 (Version 3)
Quarter: 2013Q3

REPORT INFORMATION
  Report Type: Report from Study
  Country: AT (occurrence: AT)
  Receive Date: 20121106
  Receipt Date: 20130703
  Transmission Date: 20140515
  Serious: Yes (Life-Threatening, Hospitalization)
  Sender: FDA-Public Use
  Company Number: AT-ROCHE-794004

PATIENT
  Age: 47 Year
  Sex: Male
  Weight: 80 kg

DRUGS (8)
  1. VEMURAFENIB [Suspect]
     Indication: MALIGNANT MELANOMA
     Dosage: PERMANENLTY DISCONTINUED.
     Route: 048
     Dates: start: 20110712, end: 20110801
  2. PANTOPRAZOLE [Concomitant]
     Route: 048
     Dates: start: 20110707, end: 20110801
  3. FLUCONAZOLE [Concomitant]
     Route: 065
     Dates: start: 20110721, end: 20110721
  4. NYSTATIN [Concomitant]
     Route: 048
     Dates: start: 20110721, end: 20110830
  5. PARACETAMOL [Concomitant]
     Indication: PAIN
     Dosage: FREQUENCY: AS NEEDED
     Route: 065
     Dates: start: 20110711, end: 20110801
  6. SUCRALFATE [Concomitant]
     Dosage: 3000/MG
     Route: 065
     Dates: start: 20110801, end: 20110812
  7. BENZALKONIUM CHLORIDE [Concomitant]
     Dosage: OCCULAR
     Route: 065
  8. DEXAMETHASONE [Concomitant]
     Dosage: DOSE: 8MG TAPPED TO 1MG AS STANDARD OF CARE AFTER GAMMA KNIFE TREATMENT
     Route: 065
     Dates: start: 20110707, end: 20110801

REACTIONS (3)
  - Toxic epidermal necrolysis [Recovered/Resolved with Sequelae]
  - Pyrexia [Recovering/Resolving]
  - Rash erythematous [Recovering/Resolving]
